FAERS Safety Report 9245727 (Version 1)
Quarter: 2013Q2

REPORT INFORMATION
  Report Type: Spontaneous
  Country: US (occurrence: US)
  Receive Date: 20130422
  Receipt Date: 20130422
  Transmission Date: 20140414
  Serious: No
  Sender: FDA-Public Use
  Company Number: US-PFIZER INC-2013123671

PATIENT
  Age: 48 Year
  Sex: Female

DRUGS (1)
  1. LYRICA [Suspect]
     Dosage: 450 MG, UNK

REACTIONS (6)
  - Drug prescribing error [Unknown]
  - Incorrect dose administered [Unknown]
  - Fatigue [Unknown]
  - Glossodynia [Unknown]
  - Asthenia [Unknown]
  - Feeling abnormal [Unknown]
